FAERS Safety Report 25017417 (Version 1)
Quarter: 2025Q1

REPORT INFORMATION
  Report Type: Spontaneous
  Country: DE (occurrence: DE)
  Receive Date: 20250227
  Receipt Date: 20250227
  Transmission Date: 20250409
  Serious: Yes (Death, Life-Threatening, Hospitalization)
  Sender: ROCHE
  Company Number: None

PATIENT
  Age: 89 Year
  Sex: Male
  Weight: 90 kg

DRUGS (5)
  1. METALYSE [Suspect]
     Active Substance: TENECTEPLASE
     Indication: Aphasia
     Route: 042
     Dates: start: 20250208
  2. METALYSE [Suspect]
     Active Substance: TENECTEPLASE
     Indication: Ischaemic stroke
  3. METALYSE [Suspect]
     Active Substance: TENECTEPLASE
     Indication: Muscular weakness
  4. ASPIRIN [Concomitant]
     Active Substance: ASPIRIN
     Indication: Cerebral artery stenosis
  5. PLAVIX [Concomitant]
     Active Substance: CLOPIDOGREL BISULFATE
     Indication: Cerebral artery stenosis

REACTIONS (4)
  - Seizure [Fatal]
  - Subarachnoid haemorrhage [Fatal]
  - Cerebral haemorrhage [Fatal]
  - Blood pressure increased [Unknown]

NARRATIVE: CASE EVENT DATE: 20250208
